FAERS Safety Report 15247739 (Version 1)
Quarter: 2018Q3

REPORT INFORMATION
  Report Type: Spontaneous
  Country: US (occurrence: US)
  Receive Date: 20180807
  Receipt Date: 20180807
  Transmission Date: 20181010
  Serious: No
  Sender: FDA-Public Use
  Company Number: US-ASTRAZENECA-2018SE92681

PATIENT
  Age: 26903 Day
  Sex: Female

DRUGS (2)
  1. PREDNISONE. [Concomitant]
     Active Substance: PREDNISONE
     Dosage: TAKES AS 3, 20 MG TABLETS IN THE MORNING WITH FOOD
  2. IMFINZI [Suspect]
     Active Substance: DURVALUMAB
     Indication: NON-SMALL CELL LUNG CANCER
     Dosage: 500 MG PER 10 MG, ONCE/SINGLE ADMINISTRATION
     Route: 042
     Dates: start: 20180418

REACTIONS (9)
  - Muscle spasms [Unknown]
  - Confusional state [Unknown]
  - Nasopharyngitis [Unknown]
  - Diarrhoea [Not Recovered/Not Resolved]
  - Colitis [Unknown]
  - Tongue disorder [Unknown]
  - Pyrexia [Unknown]
  - Dry mouth [Unknown]
  - Poor quality sleep [Unknown]

NARRATIVE: CASE EVENT DATE: 20180430
